FAERS Safety Report 8914124 (Version 1)
Quarter: 2012Q4

REPORT INFORMATION
  Report Type: 
  Country: JP (occurrence: JP)
  Receive Date: 20121119
  Receipt Date: 20121119
  Transmission Date: 20130627
  Serious: Yes (Death)
  Sender: FDA-Public Use
  Company Number: JP-ABBOTT-12P-087-1009953-00

PATIENT
  Age: 57 Year
  Sex: Male

DRUGS (1)
  1. VASOLAN [Suspect]
     Indication: PRODUCT USED FOR UNKNOWN INDICATION
     Route: 042
     Dates: start: 201108, end: 201108

REACTIONS (1)
  - Cardiac arrest [Fatal]
